FAERS Safety Report 5467942-X (Version None)
Quarter: 2007Q3

REPORT INFORMATION
  Report Type: 
  Country: None (occurrence: None)
  Receive Date: 20070924
  Receipt Date: 20070924
  Transmission Date: 20080115
  Serious: Yes (Other)
  Sender: FDA-Public Use
  Company Number: None

PATIENT
  Age: 26 Year
  Sex: Female

DRUGS (4)
  1. TUBERCULIN PURIFIED PROTEIN DERIVATIVE [Suspect]
     Dates: start: 20070730
  2. NASONEX [Concomitant]
  3. CYMBALTA [Concomitant]
  4. VITAMIN CAP [Concomitant]

REACTIONS (3)
  - HEADACHE [None]
  - NASOPHARYNGITIS [None]
  - PHARYNGOLARYNGEAL PAIN [None]
